FAERS Safety Report 19239384 (Version 3)
Quarter: 2021Q3

REPORT INFORMATION
  Report Type: Spontaneous
  Country: HR (occurrence: HR)
  Receive Date: 20210510
  Receipt Date: 20210708
  Transmission Date: 20211014
  Serious: Yes (Hospitalization, Other)
  Sender: FDA-Public Use
  Company Number: HR-AUROBINDO-AUR-APL-2021-018431

PATIENT
  Age: 71 Year
  Sex: Male

DRUGS (7)
  1. OLANZAPINE. [Suspect]
     Active Substance: OLANZAPINE
     Indication: HALLUCINATION
     Dosage: UNK
     Route: 065
  2. ESCITALOPRAM [Suspect]
     Active Substance: ESCITALOPRAM OXALATE
     Indication: HALLUCINATION
     Dosage: UNK
     Route: 065
  3. RIVASTIGMINE. [Suspect]
     Active Substance: RIVASTIGMINE
     Indication: DEMENTIA
     Dosage: 1.5 MILLIGRAM, ONCE A DAY
     Route: 065
  4. CLOZAPINE. [Suspect]
     Active Substance: CLOZAPINE
     Indication: HALLUCINATION
     Dosage: 25 MILLIGRAM, ONCE A DAY
     Route: 065
  5. RIVASTIGMINE. [Suspect]
     Active Substance: RIVASTIGMINE
     Dosage: 3 MILLIGRAM, DAILY, DIVIDED INTO MORNING AND EVENING APPLICATIONS
     Route: 065
  6. SIFROL [Suspect]
     Active Substance: PRAMIPEXOLE
     Indication: EXTRAPYRAMIDAL DISORDER
     Dosage: UNK
     Route: 065
  7. CARBIDOPA;LEVODOPA [Concomitant]
     Active Substance: CARBIDOPA\LEVODOPA
     Indication: PARKINSON^S DISEASE
     Dosage: UNK, 250/25 MG 3 TIMES A DAY
     Route: 065

REACTIONS (28)
  - Learning disorder [Unknown]
  - Hallucination, visual [Recovered/Resolved]
  - Disorientation [Unknown]
  - Dysarthria [Unknown]
  - Hallucination [Unknown]
  - Disturbance in attention [Unknown]
  - Reduced facial expression [Unknown]
  - Illiteracy [Unknown]
  - Hypotension [Unknown]
  - Visual impairment [Unknown]
  - Treatment noncompliance [Unknown]
  - Cerebral atrophy [Unknown]
  - Depressive symptom [Unknown]
  - Anosmia [Unknown]
  - Syncope [Unknown]
  - Memory impairment [Unknown]
  - General physical health deterioration [Unknown]
  - Arrhythmia [Unknown]
  - Flat affect [Unknown]
  - Delirium [Recovered/Resolved]
  - Frustration tolerance decreased [Unknown]
  - Bradykinesia [Unknown]
  - Drug intolerance [Unknown]
  - Drug tolerance decreased [Unknown]
  - Extrapyramidal disorder [Recovering/Resolving]
  - Somnolence [Unknown]
  - Cognitive disorder [Recovering/Resolving]
  - Consciousness fluctuating [Unknown]
